FAERS Safety Report 4749968-4 (Version None)
Quarter: 2005Q3

REPORT INFORMATION
  Report Type: 
  Country: None (occurrence: None)
  Receive Date: 20050822
  Receipt Date: 20050419
  Transmission Date: 20060218
  Serious: Yes (Hospitalization)
  Sender: FDA-Public Use
  Company Number: US-MERCK-0504USA03703

PATIENT
  Age: 62 Year
  Sex: Male
  Weight: 91 kg

DRUGS (9)
  1. NIACIN [Concomitant]
     Route: 048
     Dates: start: 20020101
  2. CELEXA [Concomitant]
     Indication: DEPRESSION
     Route: 065
  3. AMITRIPTYLINE HYDROCHLORIDE [Concomitant]
     Indication: TENSION
     Route: 065
  4. AMITRIPTYLINE HYDROCHLORIDE [Concomitant]
     Indication: ANXIETY
     Route: 065
  5. VIOXX [Suspect]
     Indication: OSTEOARTHRITIS
     Route: 048
     Dates: start: 20010830, end: 20040312
  6. DIOVAN [Concomitant]
     Indication: HYPERTENSION
     Route: 048
     Dates: start: 20020101
  7. ATENOLOL [Concomitant]
     Indication: CARDIAC DISORDER
     Route: 048
     Dates: start: 20020101
  8. ASPIRIN [Concomitant]
     Indication: CARDIAC DISORDER
     Route: 048
     Dates: start: 20020101
  9. ZOCOR [Concomitant]
     Indication: BLOOD CHOLESTEROL INCREASED
     Route: 048
     Dates: start: 20020101

REACTIONS (8)
  - ANGINA UNSTABLE [None]
  - CARDIAC DISORDER [None]
  - CARDIOMEGALY [None]
  - DILATATION ATRIAL [None]
  - GASTROOESOPHAGEAL REFLUX DISEASE [None]
  - HAEMATOCRIT INCREASED [None]
  - HAEMOGLOBIN INCREASED [None]
  - NODULE [None]
